FAERS Safety Report 6520186-2 (Version None)
Quarter: 2009Q4

REPORT INFORMATION
  Report Type: 
  Country: None (occurrence: None)
  Receive Date: 20091229
  Receipt Date: 20091214
  Transmission Date: 20100525
  Serious: Yes (Hospitalization)
  Sender: FDA-Public Use
  Company Number: FR-BAYER-200943523GPV

PATIENT
  Age: 65 Year
  Sex: Female

DRUGS (11)
  1. TRANSIPEG [Suspect]
     Route: 048
     Dates: start: 20090928, end: 20091015
  2. BI-PROFENID [Suspect]
     Route: 048
     Dates: start: 20090928, end: 20091015
  3. DAFALGAN CODEIN [Suspect]
     Route: 048
     Dates: start: 20090928, end: 20091015
  4. RANIPLEX [Suspect]
     Route: 048
     Dates: end: 20091015
  5. CALTRATE [Suspect]
     Dosage: TOTAL DAILY DOSE: 1000 MG
     Route: 048
     Dates: end: 20091015
  6. GLUCOPHAGE [Suspect]
     Dosage: TOTAL DAILY DOSE: 1000 MG
     Route: 048
     Dates: end: 20091015
  7. TAHOR [Suspect]
     Dosage: TOTAL DAILY DOSE: 40 MG
     Route: 048
     Dates: end: 20091015
  8. DIAMICRON [Suspect]
     Dosage: TOTAL DAILY DOSE: 120 MG
     Route: 048
     Dates: end: 20091015
  9. FLECAINIDE ACETATE [Suspect]
     Dosage: TOTAL DAILY DOSE: 100 MG
     Route: 048
     Dates: end: 20091015
  10. VASTAREL [Suspect]
     Dosage: TOTAL DAILY DOSE: 70 MG
     Route: 048
     Dates: end: 20091015
  11. ZELITREX [Concomitant]

REACTIONS (3)
  - DIARRHOEA [None]
  - RENAL FAILURE [None]
  - VOMITING [None]
